FAERS Safety Report 4811279-6 (Version None)
Quarter: 2005Q4

REPORT INFORMATION
  Report Type: 
  Country: None (occurrence: None)
  Receive Date: 20051025
  Receipt Date: 20050926
  Transmission Date: 20060501
  Serious: Yes (Life-Threatening, Hospitalization)
  Sender: FDA-Public Use
  Company Number: US_0510123096

PATIENT
  Age: 66 Year
  Sex: Male

DRUGS (4)
  1. GEMZAR [Suspect]
     Indication: NON-SMALL CELL LUNG CANCER
     Dosage: 1000 MG/M2
     Dates: start: 20050601, end: 20050828
  2. CARBOPLATIN [Concomitant]
  3. ONDANSETRON [Concomitant]
  4. APREPITANT [Concomitant]

REACTIONS (1)
  - PANCYTOPENIA [None]
